FAERS Safety Report 5371745-4 (Version None)
Quarter: 2007Q2

REPORT INFORMATION
  Report Type: 
  Country: None (occurrence: None)
  Receive Date: 20070619
  Receipt Date: 20070222
  Transmission Date: 20071010
  Serious: No
  Sender: FDA-Public Use
  Company Number: 2007US000551

PATIENT
  Age: 78 Year
  Sex: Female

DRUGS (10)
  1. VESICARE [Suspect]
     Indication: URINARY INCONTINENCE
     Dosage: 5 MG, UID/QD, ORAL
     Route: 048
     Dates: start: 20061201, end: 20070208
  2. ZOCOR [Concomitant]
  3. DIOVAN [Concomitant]
  4. TOPROL-XL [Concomitant]
  5. MULTIVITAMIN [Concomitant]
  6. GLUCOSAMINE (COD-LIVER OIL) [Concomitant]
  7. CALCIUM CITRATE (CALCIUM CITRATE) [Concomitant]
  8. ASPIRIN [Concomitant]
  9. GLUCOVANCE [Concomitant]
  10. DULCOLAX (BISACODYL0 [Concomitant]

REACTIONS (1)
  - VISION BLURRED [None]
